FAERS Safety Report 11139460 (Version 8)
Quarter: 2015Q4

REPORT INFORMATION
  Report Type: Report from Study
  Country: US (occurrence: US)
  Receive Date: 20150527
  Receipt Date: 20151221
  Transmission Date: 20160304
  Serious: Yes (Hospitalization)
  Sender: FDA-Public Use
  Company Number: US-TEVA-564556USA

PATIENT
  Age: 63 Year
  Sex: Female
  Weight: 63.11 kg

DRUGS (31)
  1. PANTOPRAZOLE [Concomitant]
     Active Substance: PANTOPRAZOLE SODIUM
     Indication: DYSPEPSIA
     Dosage: 40 MILLIGRAM DAILY;
     Dates: start: 20150128
  2. NEULASTA [Concomitant]
     Active Substance: PEGFILGRASTIM
     Indication: PROPHYLAXIS
     Route: 058
     Dates: start: 20150409
  3. PROGESTERONE WITH TESTOSTERONE [Concomitant]
     Indication: HORMONE LEVEL ABNORMAL
     Dates: start: 201411
  4. ABT-888 (VELIPARIB) [Suspect]
     Active Substance: VELIPARIB
     Indication: TRIPLE NEGATIVE BREAST CANCER
     Dosage: UNKNOWN
     Route: 048
     Dates: start: 20141209, end: 20150327
  5. LIPITOR [Concomitant]
     Active Substance: ATORVASTATIN CALCIUM
     Indication: HYPERCHOLESTEROLAEMIA
     Dosage: 20 MG/KG DAILY;
     Route: 048
     Dates: start: 201203
  6. LORAZEPAM. [Concomitant]
     Active Substance: LORAZEPAM
     Indication: INSOMNIA
     Route: 048
     Dates: start: 20141209
  7. ZOFRAN [Concomitant]
     Active Substance: ONDANSETRON HYDROCHLORIDE
     Indication: PROPHYLAXIS OF NAUSEA AND VOMITING
     Route: 060
     Dates: start: 20141209
  8. AMBIEN [Concomitant]
     Active Substance: ZOLPIDEM TARTRATE
     Indication: INSOMNIA
     Route: 048
     Dates: start: 20150107
  9. SALT/SODA MOUTH RINSE [Concomitant]
     Indication: MUCOSAL INFLAMMATION
     Dosage: 2 TABLESPOONS
     Route: 048
     Dates: start: 20150203
  10. TRAMADOL. [Concomitant]
     Active Substance: TRAMADOL
     Indication: HAEMORRHOIDS
     Route: 048
     Dates: start: 20150302
  11. NYSTATIN. [Concomitant]
     Active Substance: NYSTATIN
     Indication: CANDIDA INFECTION
     Route: 048
     Dates: start: 20150326
  12. CYCLOPHOSPHAMIDE. [Suspect]
     Active Substance: CYCLOPHOSPHAMIDE
     Indication: TRIPLE NEGATIVE BREAST CANCER
     Route: 042
     Dates: start: 20150408
  13. PROMETHAZINE [Concomitant]
     Active Substance: PROMETHAZINE\PROMETHAZINE HYDROCHLORIDE
     Indication: PROPHYLAXIS OF NAUSEA AND VOMITING
     Route: 048
     Dates: start: 20141209
  14. WELLBUTRIN [Concomitant]
     Active Substance: BUPROPION HYDROCHLORIDE
     Indication: DEPRESSION
     Dosage: 250 MILLIGRAM DAILY;
     Route: 048
     Dates: start: 201401
  15. COLACE [Concomitant]
     Active Substance: DOCUSATE SODIUM
     Indication: CONSTIPATION
     Route: 048
     Dates: start: 201104
  16. WITCH HAZEL. [Concomitant]
     Active Substance: WITCH HAZEL
     Indication: HAEMORRHOIDS
     Route: 061
     Dates: start: 20150223
  17. CLARITIN [Concomitant]
     Active Substance: LORATADINE
     Indication: BONE PAIN
  18. LOSARTAN POTASSIUM W/HYDROCHLOROTHIAZIDE [Concomitant]
     Active Substance: HYDROCHLOROTHIAZIDE\LOSARTAN POTASSIUM
     Indication: HYPERTENSION
     Dosage: 2.5 MILLIGRAM DAILY;
     Route: 048
     Dates: start: 201203
  19. WALGREEN^S SLEEP AID (DIPHENHYDRAMINE HYDROCHLORIDE) [Concomitant]
     Indication: INSOMNIA
     Route: 048
     Dates: start: 201212
  20. MIRALAX [Concomitant]
     Active Substance: POLYETHYLENE GLYCOL 3350
     Indication: CONSTIPATION
     Route: 048
     Dates: start: 20150107
  21. DOXORUBICIN [Suspect]
     Active Substance: DOXORUBICIN
     Indication: TRIPLE NEGATIVE BREAST CANCER
     Route: 042
     Dates: start: 20150408
  22. PACLITAXEL. [Suspect]
     Active Substance: PACLITAXEL
     Indication: TRIPLE NEGATIVE BREAST CANCER
     Route: 042
     Dates: start: 20141209, end: 20150325
  23. CLEOCIN [Concomitant]
     Active Substance: CLINDAMYCIN PHOSPHATE
     Indication: FOLLICULITIS
     Dosage: 1 PERCENT DAILY;
     Route: 061
     Dates: start: 20150104
  24. ZOVIRAX [Concomitant]
     Active Substance: ACYCLOVIR
     Indication: VULVAL DISORDER
     Dosage: 25 PERCENT DAILY;
     Route: 061
     Dates: start: 20150113
  25. CARBOPLATIN. [Suspect]
     Active Substance: CARBOPLATIN
     Indication: TRIPLE NEGATIVE BREAST CANCER
     Dosage: UNKNOWN
     Route: 042
     Dates: start: 20141209, end: 20150225
  26. TYLENOL [Concomitant]
     Active Substance: ACETAMINOPHEN
     Indication: HEADACHE
     Route: 048
     Dates: start: 1985
  27. TYLENOL [Concomitant]
     Active Substance: ACETAMINOPHEN
     Indication: PAIN
  28. IBUPROFEN. [Concomitant]
     Active Substance: IBUPROFEN
     Indication: HEADACHE
     Route: 048
     Dates: start: 1985
  29. IBUPROFEN. [Concomitant]
     Active Substance: IBUPROFEN
     Indication: PAIN
  30. TUCKS [Concomitant]
     Indication: HAEMORRHOIDS
     Route: 061
     Dates: start: 20150223
  31. CLARITIN [Concomitant]
     Active Substance: LORATADINE
     Indication: PROPHYLAXIS
     Route: 048
     Dates: start: 20150408

REACTIONS (1)
  - Febrile neutropenia [Recovered/Resolved]

NARRATIVE: CASE EVENT DATE: 20150501
